FAERS Safety Report 6464072-5 (Version None)
Quarter: 2009Q4

REPORT INFORMATION
  Report Type: 
  Country: None (occurrence: None)
  Receive Date: 20091201
  Receipt Date: 20080521
  Transmission Date: 20100525
  Serious: Yes (Other)
  Sender: FDA-Public Use
  Company Number: US-BAYER-200938625NA

PATIENT
  Age: 33 Year
  Sex: Female

DRUGS (2)
  1. BETASERON [Suspect]
     Indication: RELAPSING-REMITTING MULTIPLE SCLEROSIS
     Dosage: TOTAL DAILY DOSE: 6 MIU
     Route: 058
     Dates: start: 20080508
  2. CHLOR-TRIMETON [Concomitant]
     Indication: SEASONAL ALLERGY

REACTIONS (3)
  - APHAGIA [None]
  - CHOKING SENSATION [None]
  - HEADACHE [None]
